FAERS Safety Report 12185113 (Version 1)
Quarter: 2016Q1

REPORT INFORMATION
  Report Type: Report from Study
  Country: AT (occurrence: AT)
  Receive Date: 20160316
  Receipt Date: 20160316
  Transmission Date: 20160526
  Serious: Yes (Death, Other)
  Sender: FDA-Public Use
  Company Number: PHHY2014AT168266

PATIENT
  Age: 63 Year
  Sex: Female

DRUGS (3)
  1. LDK378 [Suspect]
     Active Substance: CERITINIB
     Indication: NON-SMALL CELL LUNG CANCER
     Dosage: 5 DF, UNK
     Route: 065
     Dates: end: 20141211
  2. LDK378 [Suspect]
     Active Substance: CERITINIB
     Dosage: 3 DF, UNK
     Route: 065
     Dates: start: 20141218
  3. LDK378 [Suspect]
     Active Substance: CERITINIB
     Dosage: 4 DF, (INTAKE IN THE EVENING)
     Route: 065

REACTIONS (6)
  - Non-small cell lung cancer [Unknown]
  - Nausea [Recovering/Resolving]
  - Death [Fatal]
  - Diarrhoea [Unknown]
  - General physical health deterioration [Unknown]
  - Malignant neoplasm progression [Unknown]

NARRATIVE: CASE EVENT DATE: 20141201
